FAERS Safety Report 5583451-1 (Version None)
Quarter: 2007Q4

REPORT INFORMATION
  Report Type: 
  Country: None (occurrence: None)
  Receive Date: 20071231
  Receipt Date: 20071212
  Transmission Date: 20080405
  Serious: Yes (Hospitalization)
  Sender: FDA-Public Use
  Company Number: ENTC2007-0372

PATIENT
  Age: 67 Year
  Sex: Male

DRUGS (12)
  1. STALEVO 100 [Suspect]
     Indication: PARKINSON'S DISEASE
     Dosage: 100/25/200 MG TID ORAL
     Route: 048
     Dates: start: 20070414, end: 20070830
  2. ISTRADEFYLLINE (LW-6002) INVESTIGATIONAL DRUG [Suspect]
     Indication: PARKINSON'S DISEASE
     Dates: start: 20041201
  3. DOXEPIN HCL [Concomitant]
  4. ASPIRIN [Concomitant]
  5. ACETYLSALICYLIC ACID SRT [Concomitant]
  6. CALCIUM (TABLET) [Concomitant]
  7. MULTIVITAMIN [Concomitant]
  8. ADVIL LIQUI-GELS [Concomitant]
  9. CRESTOR [Concomitant]
  10. PLAVIX [Concomitant]
  11. FLOMAX [Concomitant]
  12. LEVAQUIN [Concomitant]

REACTIONS (26)
  - ABDOMINAL DISTENSION [None]
  - ASTHENIA [None]
  - BARRETT'S OESOPHAGUS [None]
  - BENIGN PROSTATIC HYPERPLASIA [None]
  - BLOOD AMYLASE INCREASED [None]
  - BLOOD GLUCOSE INCREASED [None]
  - CACHEXIA [None]
  - CORONARY ARTERY DISEASE [None]
  - DEHYDRATION [None]
  - DIARRHOEA [None]
  - DIZZINESS [None]
  - DYSPEPSIA [None]
  - GASTRIC CANCER [None]
  - GASTRIC HAEMORRHAGE [None]
  - GASTRITIS [None]
  - HIATUS HERNIA [None]
  - MUCOSAL HAEMORRHAGE [None]
  - NAUSEA [None]
  - OSTEOARTHRITIS [None]
  - OXYGEN SATURATION DECREASED [None]
  - PANCREATIC CYST [None]
  - PANCREATIC NEOPLASM [None]
  - PANCREATITIS CHRONIC [None]
  - RECTAL TENESMUS [None]
  - RESPIRATORY RATE INCREASED [None]
  - WEIGHT DECREASED [None]
